FAERS Safety Report 8439177-X (Version None)
Quarter: 2012Q2

REPORT INFORMATION
  Report Type: 
  Country: None (occurrence: None)
  Receive Date: 20120615
  Receipt Date: 20120606
  Transmission Date: 20120825
  Serious: Yes (Hospitalization)
  Sender: FDA-Public Use
  Company Number: PHHY2011BR11818

PATIENT
  Sex: Female
  Weight: 65 kg

DRUGS (5)
  1. LIPOSIC [Concomitant]
     Indication: CATARACT
  2. DIOVAN [Suspect]
     Indication: HYPERTENSION
     Dosage: 1 DF, ONE TABLET IN THE MORNING AND ONE TABLET AT NIGHT
     Route: 048
     Dates: start: 20050101
  3. OLCADIL [Suspect]
     Indication: DEPRESSION
     Dosage: 2 MG, DAILY
     Route: 048
  4. LIPOSIC [Concomitant]
     Indication: GLAUCOMA
     Dosage: UNK UKN, UNK
     Route: 047
  5. METFORMIN HYDROCHLORIDE [Concomitant]
     Indication: DIABETES MELLITUS
     Dosage: 1 DF, BID (1 TABLET 2 TIMES DAILY AFTER THE LUNCH AND DINNER)
     Route: 048

REACTIONS (1)
  - TRANSIENT ISCHAEMIC ATTACK [None]
